FAERS Safety Report 13839453 (Version 1)
Quarter: 2017Q3

REPORT INFORMATION
  Report Type: Spontaneous
  Country: US (occurrence: US)
  Receive Date: 20170805
  Receipt Date: 20170805
  Transmission Date: 20171127
  Serious: No
  Sender: FDA-Public Use
  Company Number: None

PATIENT
  Age: 53 Year
  Sex: Male

DRUGS (15)
  1. CARBAMAZEPINE. [Concomitant]
     Active Substance: CARBAMAZEPINE
  2. CLOBAZAM [Concomitant]
     Active Substance: CLOBAZAM
  3. ACETAMINOPHEN-CODEINE [Concomitant]
     Active Substance: ACETAMINOPHEN\CODEINE PHOSPHATE
  4. CLINDAMYCIN. [Suspect]
     Active Substance: CLINDAMYCIN
     Indication: PROPHYLAXIS
     Route: 042
     Dates: start: 20170322, end: 20170325
  5. BISACODYL. [Concomitant]
     Active Substance: BISACODYL
  6. LORAZAPAM [Concomitant]
     Active Substance: LORAZEPAM
  7. LABETALOL [Concomitant]
     Active Substance: LABETALOL\LABETALOL HYDROCHLORIDE
  8. DOCUSATE [Concomitant]
     Active Substance: DOCUSATE
  9. MORPHINE [Concomitant]
     Active Substance: MORPHINE
  10. VANCOMYCIN [Concomitant]
     Active Substance: VANCOMYCIN
  11. LEVETIRACETAM. [Concomitant]
     Active Substance: LEVETIRACETAM
  12. PHENYTOIN. [Concomitant]
     Active Substance: PHENYTOIN
  13. BETADINE [Suspect]
     Active Substance: POVIDONE-IODINE
     Dosage: 1 APPLICATION ONCE TOPICAL
     Route: 061
  14. CITALOPRAM [Concomitant]
     Active Substance: CITALOPRAM HYDROBROMIDE
  15. TRIAMCINOLONE CREAM [Concomitant]
     Active Substance: TRIAMCINOLONE

REACTIONS (3)
  - Pruritus [None]
  - Rash [None]
  - Pyrexia [None]

NARRATIVE: CASE EVENT DATE: 20170325
